FAERS Safety Report 20072635 (Version 1)
Quarter: 2021Q4

REPORT INFORMATION
  Report Type: Report from Study
  Country: KR (occurrence: KR)
  Receive Date: 20211116
  Receipt Date: 20211116
  Transmission Date: 20220304
  Serious: Yes (Hospitalization)
  Sender: FDA-Public Use
  Company Number: KR-ABBVIE-21K-090-4160195-00

PATIENT
  Age: 50 Year
  Sex: Female

DRUGS (5)
  1. RINVOQ [Suspect]
     Active Substance: UPADACITINIB
     Indication: Rheumatoid arthritis
     Route: 048
     Dates: start: 20210825, end: 20211101
  2. METHOTREXATE [Concomitant]
     Active Substance: METHOTREXATE
     Indication: Rheumatoid arthritis
     Route: 048
     Dates: start: 20210825
  3. FOLCID [Concomitant]
     Indication: Rheumatoid arthritis
     Route: 048
  4. TRACINONE [Concomitant]
     Indication: Rheumatoid arthritis
     Route: 048
  5. NOLTEC [Concomitant]
     Indication: Rheumatoid arthritis
     Dates: start: 20210825

REACTIONS (1)
  - Abdominal pain upper [Not Recovered/Not Resolved]

NARRATIVE: CASE EVENT DATE: 20211028
